FAERS Safety Report 9264795 (Version 1)
Quarter: 2013Q2

REPORT INFORMATION
  Report Type: Spontaneous
  Country: US (occurrence: None)
  Receive Date: 20130426
  Receipt Date: 20130426
  Transmission Date: 20140414
  Serious: Yes (Life-Threatening, Hospitalization)
  Sender: FDA-Public Use
  Company Number: 2013P1004880

PATIENT
  Age: 13 Year
  Sex: Female
  Weight: 61 kg

DRUGS (3)
  1. AMLODIPINE [Suspect]
     Indication: INTENTIONAL OVERDOSE
     Route: 048
  2. UNSPECIFIED BARBITURATES [Suspect]
     Indication: INTENTIONAL OVERDOSE
     Route: 048
  3. ALCOHOL [Suspect]
     Route: 048

REACTIONS (11)
  - Fatigue [None]
  - Heart rate increased [None]
  - No therapeutic response [None]
  - Intentional overdose [None]
  - Hypotension [None]
  - Somnolence [None]
  - Lactic acidosis [None]
  - Mental status changes [None]
  - Hypoperfusion [None]
  - Blood creatinine increased [None]
  - Oliguria [None]
